FAERS Safety Report 24681461 (Version 5)
Quarter: 2025Q3

REPORT INFORMATION
  Report Type: Spontaneous
  Country: JP (occurrence: JP)
  Receive Date: 20241129
  Receipt Date: 20250809
  Transmission Date: 20251021
  Serious: Yes (Hospitalization, Disabling, Other)
  Sender: ALEXION PHARMACEUTICALS
  Company Number: JP-ASTRAZENECA-240108773_063010_P_1

PATIENT
  Age: 67 Year
  Sex: Male
  Weight: 70 kg

DRUGS (34)
  1. DAPAGLIFLOZIN [Suspect]
     Active Substance: DAPAGLIFLOZIN
     Dosage: 10 MILLIGRAM, QD
     Dates: end: 20240926
  2. VILDAGLIPTIN [Concomitant]
     Active Substance: VILDAGLIPTIN
     Indication: Diabetes mellitus
     Route: 065
  3. VILDAGLIPTIN [Concomitant]
     Active Substance: VILDAGLIPTIN
     Indication: Type 2 diabetes mellitus
     Dates: end: 20240926
  4. METGLUCO [Concomitant]
     Active Substance: METFORMIN HYDROCHLORIDE
     Indication: Diabetes mellitus
  5. METGLUCO [Concomitant]
     Active Substance: METFORMIN HYDROCHLORIDE
     Indication: Type 2 diabetes mellitus
     Dosage: 750 MILLIGRAM, BID
  6. METGLUCO [Concomitant]
     Active Substance: METFORMIN HYDROCHLORIDE
     Dosage: 250 MILLIGRAM, TID
     Dates: end: 20240926
  7. RYZODEG 70/30 [Concomitant]
     Active Substance: INSULIN ASPART\INSULIN DEGLUDEC
     Indication: Diabetes mellitus
  8. RYZODEG 70/30 [Concomitant]
     Active Substance: INSULIN ASPART\INSULIN DEGLUDEC
     Indication: Type 2 diabetes mellitus
  9. RYZODEG 70/30 [Concomitant]
     Active Substance: INSULIN ASPART\INSULIN DEGLUDEC
  10. RYZODEG 70/30 [Concomitant]
     Active Substance: INSULIN ASPART\INSULIN DEGLUDEC
  11. RYZODEG 70/30 [Concomitant]
     Active Substance: INSULIN ASPART\INSULIN DEGLUDEC
  12. BISOPROLOL [Concomitant]
     Active Substance: BISOPROLOL
     Indication: Angina pectoris
     Dosage: 0.625 MILLIGRAM, BID
     Route: 065
  13. BISOPROLOL [Concomitant]
     Active Substance: BISOPROLOL
  14. BISOPROLOL [Concomitant]
     Active Substance: BISOPROLOL
  15. BISOPROLOL [Concomitant]
     Active Substance: BISOPROLOL
  16. LANSOPRAZOLE [Concomitant]
     Active Substance: LANSOPRAZOLE
     Indication: Prophylaxis against gastrointestinal ulcer
     Route: 065
  17. LANSOPRAZOLE [Concomitant]
     Active Substance: LANSOPRAZOLE
     Route: 065
  18. LANSOPRAZOLE [Concomitant]
     Active Substance: LANSOPRAZOLE
     Dosage: 15 MILLIGRAM, QD
  19. LANSOPRAZOLE [Concomitant]
     Active Substance: LANSOPRAZOLE
  20. LANSOPRAZOLE [Concomitant]
     Active Substance: LANSOPRAZOLE
  21. ATORVASTATIN [Concomitant]
     Active Substance: ATORVASTATIN
     Indication: Dyslipidaemia
     Route: 065
  22. ATORVASTATIN [Concomitant]
     Active Substance: ATORVASTATIN
     Dosage: 10 MILLIGRAM, QD
  23. ATORVASTATIN [Concomitant]
     Active Substance: ATORVASTATIN
  24. ATORVASTATIN [Concomitant]
     Active Substance: ATORVASTATIN
  25. PEMAFIBRATE [Concomitant]
     Active Substance: PEMAFIBRATE
     Indication: Dyslipidaemia
     Dosage: 0.1 MILLIGRAM, BID
     Route: 065
  26. PEMAFIBRATE [Concomitant]
     Active Substance: PEMAFIBRATE
  27. PEMAFIBRATE [Concomitant]
     Active Substance: PEMAFIBRATE
  28. PEMAFIBRATE [Concomitant]
     Active Substance: PEMAFIBRATE
  29. NAFTOPIDIL [Concomitant]
     Active Substance: NAFTOPIDIL
     Indication: Pollakiuria
     Route: 065
  30. NAFTOPIDIL [Concomitant]
     Active Substance: NAFTOPIDIL
     Route: 065
  31. NAFTOPIDIL [Concomitant]
     Active Substance: NAFTOPIDIL
     Dosage: 50 MILLIGRAM, QD
     Dates: end: 20240926
  32. ASPIRIN [Concomitant]
     Active Substance: ASPIRIN
     Indication: Angina pectoris
  33. ASPIRIN [Concomitant]
     Active Substance: ASPIRIN
  34. ASPIRIN [Concomitant]
     Active Substance: ASPIRIN

REACTIONS (3)
  - Sepsis [Recovered/Resolved with Sequelae]
  - Renal impairment [Not Recovered/Not Resolved]
  - Urinary tract infection [Recovered/Resolved with Sequelae]

NARRATIVE: CASE EVENT DATE: 20240925
